FAERS Safety Report 8812122 (Version 5)
Quarter: 2013Q2

REPORT INFORMATION
  Report Type: Report from Study
  Country: US (occurrence: US)
  Receive Date: 20120927
  Receipt Date: 20130620
  Transmission Date: 20140414
  Serious: Yes (Hospitalization, Other)
  Sender: FDA-Public Use
  Company Number: US-ELI_LILLY_AND_COMPANY-US201209006066

PATIENT
  Sex: Female
  Weight: 68 kg

DRUGS (15)
  1. SOMATROPIN [Suspect]
     Indication: DWARFISM
     Dosage: 0.4 MG, QD
     Dates: start: 20090924
  2. SOMATROPIN [Suspect]
     Dosage: 0.4 MG, UNK
     Dates: start: 201109
  3. SOMATROPIN [Suspect]
     Dosage: 0.5 MG, UNK
  4. SOMATROPIN [Suspect]
     Dosage: 0.5 MG, UNK
  5. SOMATROPIN [Suspect]
     Dosage: 0.5 MG, UNK
     Dates: end: 20121130
  6. SYNTHROID [Suspect]
  7. CRESTOR [Suspect]
     Dosage: 20 MG, QD
  8. CRESTOR [Suspect]
     Dosage: 10 MG, QD
  9. ASA [Concomitant]
  10. CO Q10 [Concomitant]
  11. MVI [Concomitant]
  12. VITAMIN D [Concomitant]
  13. VITAMIN E [Concomitant]
  14. XANAX [Concomitant]
     Indication: ANXIETY
  15. FLAXSEED OIL [Concomitant]

REACTIONS (14)
  - Coronary artery occlusion [Recovered/Resolved]
  - Loss of consciousness [Recovered/Resolved]
  - Thyroid function test abnormal [Recovered/Resolved]
  - Anxiety [Not Recovered/Not Resolved]
  - Depression [Not Recovered/Not Resolved]
  - Blood pressure fluctuation [Not Recovered/Not Resolved]
  - Palpitations [Not Recovered/Not Resolved]
  - Back pain [Not Recovered/Not Resolved]
  - Neck pain [Not Recovered/Not Resolved]
  - Pain in extremity [Not Recovered/Not Resolved]
  - Arthralgia [Not Recovered/Not Resolved]
  - Panic attack [Not Recovered/Not Resolved]
  - Dementia [Unknown]
  - Prescribed overdose [Unknown]
